FAERS Safety Report 5712760-8 (Version None)
Quarter: 2008Q2

REPORT INFORMATION
  Report Type: 
  Country: None (occurrence: None)
  Receive Date: 20080421
  Receipt Date: 20080421
  Transmission Date: 20081010
  Serious: Yes (Life-Threatening, Hospitalization, Other)
  Sender: FDA-Public Use
  Company Number: None

PATIENT
  Age: 45 Year
  Sex: Female
  Weight: 58.9676 kg

DRUGS (1)
  1. METOPROLOL SUCCINATE EXTENDED RELEASE [Suspect]
     Indication: ARRHYTHMIA
     Dosage: 1 TAB BY MOUTH EVERYDAY PO
     Route: 048
     Dates: start: 20071219, end: 20080305

REACTIONS (24)
  - BLOOD PRESSURE DECREASED [None]
  - CRYING [None]
  - DEPRESSION [None]
  - DIZZINESS [None]
  - EXTRASYSTOLES [None]
  - EYE PAIN [None]
  - FIBROADENOMA OF BREAST [None]
  - FOREIGN BODY TRAUMA [None]
  - HIATUS HERNIA [None]
  - HYPOAESTHESIA [None]
  - MEMORY IMPAIRMENT [None]
  - MIGRAINE WITH AURA [None]
  - MOOD SWINGS [None]
  - MORTON'S NEUROMA [None]
  - MUSCLE SPASMS [None]
  - PARAESTHESIA [None]
  - PHARMACEUTICAL PRODUCT COMPLAINT [None]
  - PHOTOPSIA [None]
  - RED BLOOD CELL COUNT DECREASED [None]
  - SERUM FERRITIN INCREASED [None]
  - THINKING ABNORMAL [None]
  - TINNITUS [None]
  - VENTRICULAR EXTRASYSTOLES [None]
  - VISION BLURRED [None]
